FAERS Safety Report 9060055 (Version 1)
Quarter: 2013Q2

REPORT INFORMATION
  Report Type: Spontaneous
  Country: US (occurrence: None)
  Receive Date: 20130207
  Receipt Date: 20130207
  Transmission Date: 20140414
  Serious: Yes (Hospitalization)
  Sender: FDA-Public Use
  Company Number: None

PATIENT
  Age: 69 Year
  Sex: Male
  Weight: 85.78 kg

DRUGS (2)
  1. LINIFANIBN [Suspect]
     Indication: COLON CANCER
     Route: 048
     Dates: start: 20120320, end: 20120720
  2. LINIFANIB [Suspect]
     Route: 048
     Dates: start: 20120720, end: 20120817

REACTIONS (8)
  - International normalised ratio increased [None]
  - Blood bilirubin increased [None]
  - Blood alkaline phosphatase increased [None]
  - Aspartate aminotransferase increased [None]
  - Alanine aminotransferase increased [None]
  - Acute hepatic failure [None]
  - Bile duct obstruction [None]
  - Skin toxicity [None]
